FAERS Safety Report 18291746 (Version 4)
Quarter: 2022Q2

REPORT INFORMATION
  Report Type: Spontaneous
  Country: BR (occurrence: BR)
  Receive Date: 20200922
  Receipt Date: 20220628
  Transmission Date: 20220721
  Serious: Yes (Other)
  Sender: FDA-Public Use
  Company Number: BR-GLAXOSMITHKLINE-BR2020AMR187753

PATIENT

DRUGS (1)
  1. CLINDOXYL [Suspect]
     Active Substance: BENZOYL PEROXIDE\CLINDAMYCIN PHOSPHATE
     Indication: Skin disorder
     Dosage: UNK, 45 G
     Dates: start: 20200908

REACTIONS (9)
  - Erythema [Unknown]
  - Swelling [Unknown]
  - Oedema [Unknown]
  - Macule [Unknown]
  - Drug hypersensitivity [Unknown]
  - Pruritus [Unknown]
  - Wound [Unknown]
  - Insomnia [Unknown]
  - Product use in unapproved indication [Unknown]

NARRATIVE: CASE EVENT DATE: 20200909
